FAERS Safety Report 5128249-3 (Version None)
Quarter: 2006Q4

REPORT INFORMATION
  Report Type: 
  Country: None (occurrence: None)
  Receive Date: 20061011
  Receipt Date: 20051123
  Transmission Date: 20070319
  Serious: Yes (Hospitalization)
  Sender: FDA-Public Use
  Company Number: 2005BI021692

PATIENT

DRUGS (3)
  1. ZEVALIN [Suspect]
     Indication: NON-HODGKIN'S LYMPHOMA
     Dosage: 1X; IV
     Route: 042
     Dates: start: 20041209, end: 20041209
  2. ZEVALIN [Suspect]
     Indication: NON-HODGKIN'S LYMPHOMA
     Dosage: 1X'; IV
     Dates: start: 20041216, end: 20041216
  3. RITUXIMAB [Concomitant]

REACTIONS (4)
  - ACCIDENT [None]
  - CONTUSION [None]
  - PELVIC FRACTURE [None]
  - RIB FRACTURE [None]
